FAERS Safety Report 20056123 (Version 1)
Quarter: 2021Q4

REPORT INFORMATION
  Report Type: Spontaneous
  Country: US (occurrence: US)
  Receive Date: 20211111
  Receipt Date: 20211111
  Transmission Date: 20220303
  Serious: No
  Sender: FDA-Public Use
  Company Number: US-ELI_LILLY_AND_COMPANY-US202111004949

PATIENT
  Sex: Female

DRUGS (12)
  1. ZYPREXA [Suspect]
     Active Substance: OLANZAPINE
     Indication: Depression
     Dosage: 15 MG, UNKNOWN
     Route: 048
  2. ZYPREXA [Suspect]
     Active Substance: OLANZAPINE
     Indication: Insomnia
  3. ZYPREXA [Suspect]
     Active Substance: OLANZAPINE
     Indication: Depression
     Dosage: 12.5 MG, UNKNOWN
     Route: 048
  4. ZYPREXA [Suspect]
     Active Substance: OLANZAPINE
     Indication: Insomnia
  5. ZYPREXA [Suspect]
     Active Substance: OLANZAPINE
     Indication: Depression
     Dosage: 10 MG, UNKNOWN
     Route: 048
  6. ZYPREXA [Suspect]
     Active Substance: OLANZAPINE
     Indication: Insomnia
  7. ZYPREXA [Suspect]
     Active Substance: OLANZAPINE
     Indication: Depression
     Dosage: 7.5 MG, UNKNOWN
     Route: 048
  8. ZYPREXA [Suspect]
     Active Substance: OLANZAPINE
     Indication: Insomnia
  9. ZYPREXA [Suspect]
     Active Substance: OLANZAPINE
     Indication: Depression
     Dosage: 5 MG, UNKNOWN
     Route: 048
  10. ZYPREXA [Suspect]
     Active Substance: OLANZAPINE
     Indication: Insomnia
  11. ZYPREXA [Suspect]
     Active Substance: OLANZAPINE
     Indication: Depression
     Dosage: 2.5 MG, UNKNOWN
     Route: 048
  12. ZYPREXA [Suspect]
     Active Substance: OLANZAPINE
     Indication: Insomnia

REACTIONS (3)
  - Eyelid skin dryness [Not Recovered/Not Resolved]
  - Eye pain [Not Recovered/Not Resolved]
  - Weight increased [Not Recovered/Not Resolved]
